FAERS Safety Report 20754535 (Version 1)
Quarter: 2022Q2

REPORT INFORMATION
  Report Type: Spontaneous
  Country: US (occurrence: None)
  Receive Date: 20220426
  Receipt Date: 20220426
  Transmission Date: 20220721
  Serious: No
  Sender: FDA-Public Use
  Company Number: US-ROCHE-2977701

PATIENT
  Sex: Male

DRUGS (2)
  1. ESBRIET [Suspect]
     Active Substance: PIRFENIDONE
     Indication: Pulmonary arterial hypertension
     Route: 048
     Dates: start: 20190205
  2. TYVASO [Concomitant]
     Active Substance: TREPROSTINIL
     Dosage: 3 BREATHS 4 TIMES PER DAY AND INCREASED WEEKLY 1 BREATH 4 TIMES PER DAY UP TO A GOAL OF 9 TO12 BREAT

REACTIONS (3)
  - Confusional state [Unknown]
  - Heart rate increased [Unknown]
  - Off label use [Unknown]
